FAERS Safety Report 17185743 (Version 1)
Quarter: 2019Q4

REPORT INFORMATION
  Report Type: Spontaneous
  Country: CA (occurrence: CA)
  Receive Date: 20191220
  Receipt Date: 20191220
  Transmission Date: 20200122
  Serious: Yes (Death)
  Sender: FDA-Public Use
  Company Number: CA-ROCHE-2500944

PATIENT
  Age: 70 Year
  Sex: Male

DRUGS (21)
  1. FLUVOXAMINE [Suspect]
     Active Substance: FLUVOXAMINE
     Indication: PRODUCT USED FOR UNKNOWN INDICATION
     Route: 065
  2. CLONAZEPAM. [Suspect]
     Active Substance: CLONAZEPAM
     Indication: PRODUCT USED FOR UNKNOWN INDICATION
     Route: 048
  3. APO-CAL [Concomitant]
     Active Substance: CALCIUM CARBONATE
  4. LIPITOR [Concomitant]
     Active Substance: ATORVASTATIN CALCIUM
  5. OXAZEPAM. [Concomitant]
     Active Substance: OXAZEPAM
  6. SYNTHROID [Concomitant]
     Active Substance: LEVOTHYROXINE SODIUM
  7. VIOXX [Concomitant]
     Active Substance: ROFECOXIB
  8. COLACE [Concomitant]
     Active Substance: DOCUSATE SODIUM
  9. LOSEC [Concomitant]
     Active Substance: OMEPRAZOLE
  10. SENOKOT [Concomitant]
     Active Substance: SENNOSIDES
  11. CODEINE [Suspect]
     Active Substance: CODEINE
     Indication: PRODUCT USED FOR UNKNOWN INDICATION
     Route: 065
  12. NITRO-DUR [Concomitant]
     Active Substance: NITROGLYCERIN
  13. DILAUDID [Suspect]
     Active Substance: HYDROMORPHONE HYDROCHLORIDE
     Indication: PRODUCT USED FOR UNKNOWN INDICATION
     Route: 065
  14. FLURAZEPAM HYDROCHLORIDE. [Suspect]
     Active Substance: FLURAZEPAM HYDROCHLORIDE
     Indication: PRODUCT USED FOR UNKNOWN INDICATION
     Route: 048
  15. ACETAMINOPHEN. [Concomitant]
     Active Substance: ACETAMINOPHEN
  16. ACETAMINOPHEN AND CODEINE [Concomitant]
     Active Substance: ACETAMINOPHEN\CODEINE PHOSPHATE
  17. CORDARONE [Concomitant]
     Active Substance: AMIODARONE HYDROCHLORIDE
  18. ASA [Concomitant]
     Active Substance: ASPIRIN
  19. MOTILIUM [Concomitant]
     Active Substance: DOMPERIDONE
  20. FENTANYL. [Suspect]
     Active Substance: FENTANYL
     Indication: PRODUCT USED FOR UNKNOWN INDICATION
     Route: 065
  21. GRAVOL [Concomitant]
     Active Substance: DIMENHYDRINATE

REACTIONS (7)
  - Rib fracture [Fatal]
  - Disorientation [Fatal]
  - Pathological fracture [Fatal]
  - Confusional state [Fatal]
  - Fatigue [Fatal]
  - Ecchymosis [Fatal]
  - Respiratory failure [Fatal]
